FAERS Safety Report 4318205-7 (Version None)
Quarter: 2004Q1

REPORT INFORMATION
  Report Type: 
  Country: None (occurrence: None)
  Receive Date: 20040315
  Receipt Date: 20040303
  Transmission Date: 20041129
  Serious: Yes (Other)
  Sender: FDA-Public Use
  Company Number: HQWYE549104MAR04

PATIENT
  Age: 60 Year
  Sex: Male

DRUGS (2)
  1. MINOMYCIN (MINOCYCLINE, TABLET) [Suspect]
     Indication: PNEUMONIA
  2. SULPERAZON (CEFOPERAZONE SODIUM/SULBACTAM SODIUM) [Concomitant]

REACTIONS (1)
  - HAEMORRHAGIC DIATHESIS [None]
